FAERS Safety Report 9848000 (Version 1)
Quarter: 2014Q1

REPORT INFORMATION
  Report Type: Spontaneous
  Country: US (occurrence: US)
  Receive Date: 20140128
  Receipt Date: 20140128
  Transmission Date: 20141002
  Serious: Yes (Other)
  Sender: FDA-Public Use
  Company Number: US-SUN PHARMACEUTICAL INDUSTRIES LTD-2014SUN00075

PATIENT
  Age: 44 Year
  Sex: Male

DRUGS (17)
  1. QUETIAPINE FUMARATE 100MG TABLETS [Suspect]
     Indication: AFFECTIVE DISORDER
     Dosage: 1-3 TABLETS EVERY EVENING
     Route: 065
  2. TAMSULOSIN HCL CAPS 0.4MG [Interacting]
     Indication: PRODUCT USED FOR UNKNOWN INDICATION
     Dosage: 0.4 MG, DAILY
     Route: 065
  3. DOXAZOSIN [Interacting]
     Indication: PRODUCT USED FOR UNKNOWN INDICATION
     Dosage: 8 MG AT BEDTIME
     Route: 065
  4. BOCEPREVIR [Interacting]
     Indication: HEPATITIS C
     Dosage: 800 MG, TID
     Route: 065
  5. TESTOSTERONE CYPIONATE [Suspect]
     Indication: HYPOGONADISM
     Dosage: 200 MG, EVERY 14 DAYS
     Route: 030
  6. EFAVIRENZ, EMTRICITABINE, TENOFOVIR DISOPROXIL [Concomitant]
     Dosage: 600MG/200MG/300MG, DAILY
     Route: 048
  7. PEGINTERFERON ALFA-2B [Concomitant]
     Indication: HEPATITIS C
     Dosage: 120 MCG, EVERY SEVEN DAYS
     Route: 058
  8. RIBAVIRIN [Concomitant]
     Indication: HEPATITIS C
     Dosage: 400 MG EVERY MORNING AND 600 MG EVERY EVENING
  9. ONDANSETRON [Concomitant]
     Indication: NAUSEA
     Dosage: 4 MG, 1DOSE/6HOUR
  10. ESOMEPRAZOLE [Concomitant]
     Dosage: 40 MG, DAILY
  11. LITHIUM [Concomitant]
     Dosage: 1200 MG AT BEDTIME
  12. LOSARTAN [Concomitant]
     Dosage: 50 MG, DAILY
  13. NAPROXEN [Concomitant]
     Indication: PAIN
     Dosage: 500 MG, BID, AS PER NEED
  14. ACETAMINOPHEN/OXYCODONE [Concomitant]
     Indication: PAIN
     Dosage: 325MG/5MG EVERY 6 HOURS AS PER NEED
  15. LOPERAMIDE [Concomitant]
     Indication: DIARRHOEA
     Dosage: 2 MG, PRN
  16. CODEINE/GUAIFENESIN [Concomitant]
     Indication: COUGH
     Dosage: 10 ML, QID, PRN
  17. CYCLOBENZAPRINE [Concomitant]
     Indication: MUSCLE SPASMS
     Dosage: 10 MG EVERY 8 HRS, PRN

REACTIONS (2)
  - Drug interaction [Unknown]
  - Priapism [Recovering/Resolving]
